FAERS Safety Report 7306630-1 (Version None)
Quarter: 2011Q1

REPORT INFORMATION
  Report Type: 
  Country: None (occurrence: None)
  Receive Date: 20110222
  Receipt Date: 20110215
  Transmission Date: 20110831
  Serious: Yes (Hospitalization, Other)
  Sender: FDA-Public Use
  Company Number: US-US-EMD SERONO, INC.-7006329

PATIENT
  Sex: Female

DRUGS (2)
  1. SOLU-MEDROL [Concomitant]
     Dates: start: 20060101
  2. REBIF [Suspect]
     Indication: MULTIPLE SCLEROSIS
     Route: 058
     Dates: start: 20060113, end: 20100101

REACTIONS (6)
  - INJECTION SITE PAIN [None]
  - MICTURITION URGENCY [None]
  - UTERINE LEIOMYOMA [None]
  - HAEMANGIOMA OF LIVER [None]
  - PAIN [None]
  - MULTIPLE SCLEROSIS RELAPSE [None]
